FAERS Safety Report 8370080-X (Version None)
Quarter: 2012Q2

REPORT INFORMATION
  Report Type: 
  Country: None (occurrence: None)
  Receive Date: 20120518
  Receipt Date: 20120507
  Transmission Date: 20120825
  Serious: Yes (Other)
  Sender: FDA-Public Use
  Company Number: US-JNJFOC-20120512019

PATIENT
  Age: 25 Year
  Sex: Male

DRUGS (9)
  1. DOXORUBICIN HCL [Suspect]
     Indication: DESMOPLASTIC SMALL ROUND CELL TUMOUR
     Route: 042
  2. VINCRISTINE [Suspect]
     Indication: DESMOPLASTIC SMALL ROUND CELL TUMOUR
     Route: 042
  3. ETOPOSIDE [Suspect]
     Indication: DESMOPLASTIC SMALL ROUND CELL TUMOUR
     Route: 042
  4. PREDNISONE [Suspect]
     Indication: DESMOPLASTIC SMALL ROUND CELL TUMOUR
     Route: 048
  5. TACROLIMUS [Suspect]
     Indication: GRAFT VERSUS HOST DISEASE
     Route: 065
  6. SIROLIMUS [Suspect]
     Indication: GRAFT VERSUS HOST DISEASE
     Route: 065
  7. CYCLOPHOSPHAMIDE [Suspect]
     Indication: DESMOPLASTIC SMALL ROUND CELL TUMOUR
     Route: 042
  8. FLUDARABINE PHOSPHATE [Suspect]
     Indication: DESMOPLASTIC SMALL ROUND CELL TUMOUR
     Route: 042
  9. FILGRASTIM [Suspect]
     Indication: DESMOPLASTIC SMALL ROUND CELL TUMOUR
     Route: 058

REACTIONS (3)
  - MUCOSAL INFLAMMATION [None]
  - CHRONIC GRAFT VERSUS HOST DISEASE [None]
  - OFF LABEL USE [None]
